FAERS Safety Report 8879371 (Version 1)
Quarter: 2012Q4

REPORT INFORMATION
  Report Type: 
  Country: AU (occurrence: AU)
  Receive Date: 20121031
  Receipt Date: 20121031
  Transmission Date: 20130627
  Serious: Yes (Hospitalization)
  Sender: FDA-Public Use
  Company Number: AU-B.I. PHARMACEUTICALS,INC./RIDGEFIELD-2012-AU-01804AU

PATIENT
  Age: 74 Year
  Sex: Male

DRUGS (2)
  1. PRADAXA [Suspect]
     Dosage: 300 mg
     Dates: end: 201210
  2. PRADAXA [Suspect]
     Dosage: 220 mg
     Dates: start: 201210

REACTIONS (1)
  - Acute coronary syndrome [Unknown]
